FAERS Safety Report 7931844-7 (Version None)
Quarter: 2011Q4

REPORT INFORMATION
  Report Type: 
  Country: None (occurrence: None)
  Receive Date: 20111121
  Receipt Date: 20111116
  Transmission Date: 20120403
  Serious: Yes (Hospitalization)
  Sender: FDA-Public Use
  Company Number: US-ABBOTT-10P-163-0690927-00

PATIENT
  Sex: Male
  Weight: 124.85 kg

DRUGS (9)
  1. HUMIRA [Suspect]
     Indication: PSORIASIS
     Dosage: ONCE
     Route: 058
     Dates: start: 20091020, end: 20091020
  2. ANSAID [Concomitant]
     Indication: PAIN
  3. TENORMIN [Concomitant]
     Indication: HYPERTENSION
     Dates: start: 19890101
  4. COMMERCIAL HUMIRA [Concomitant]
     Indication: PSORIASIS
     Dates: start: 20070901
  5. HUMIRA [Suspect]
     Route: 058
     Dates: end: 20101202
  6. METHOTREXATE [Concomitant]
     Indication: PSORIASIS
     Route: 030
     Dates: start: 20070111
  7. ANSAID [Concomitant]
     Indication: JOINT STIFFNESS
     Dates: start: 19890101
  8. CORTICOSTEROIDS, DERMATOLOGICAL PREPARATIONS [Concomitant]
     Indication: PSORIASIS
     Dates: start: 19710101
  9. METFORMIN HCL [Concomitant]
     Indication: TYPE 2 DIABETES MELLITUS
     Dates: start: 20101101

REACTIONS (1)
  - HEPATIC CIRRHOSIS [None]
